FAERS Safety Report 10672508 (Version 1)
Quarter: 2014Q4

REPORT INFORMATION
  Report Type: Spontaneous
  Country: US (occurrence: None)
  Receive Date: 20141222
  Receipt Date: 20141222
  Transmission Date: 20150529
  Serious: Yes (Other)
  Sender: FDA-Public Use
  Company Number: None

PATIENT
  Age: 31 Year
  Sex: Male
  Weight: 86.18 kg

DRUGS (1)
  1. ADDERALL [Suspect]
     Active Substance: AMPHETAMINE ASPARTATE\AMPHETAMINE SULFATE\DEXTROAMPHETAMINE SACCHARATE\DEXTROAMPHETAMINE SULFATE
     Indication: ATTENTION DEFICIT/HYPERACTIVITY DISORDER
     Dosage: 2-3 TIMES DAILY
     Route: 048

REACTIONS (8)
  - Abnormal behaviour [None]
  - Peripheral swelling [None]
  - Product quality issue [None]
  - Joint swelling [None]
  - Circadian rhythm sleep disorder [None]
  - Product substitution issue [None]
  - Feeling abnormal [None]
  - Irritability [None]

NARRATIVE: CASE EVENT DATE: 20140601
